FAERS Safety Report 15618187 (Version 1)
Quarter: 2018Q4

REPORT INFORMATION
  Report Type: Spontaneous
  Country: FR (occurrence: FR)
  Receive Date: 20181114
  Receipt Date: 20181114
  Transmission Date: 20190205
  Serious: Yes (Hospitalization)
  Sender: FDA-Public Use
  Company Number: FR-PFIZER INC-2018462793

PATIENT
  Age: 79 Year
  Sex: Male
  Weight: 84 kg

DRUGS (13)
  1. METFORMIN [Concomitant]
     Active Substance: METFORMIN HYDROCHLORIDE
  2. NOVONORM [Concomitant]
     Active Substance: REPAGLINIDE
  3. IBUPROFEN. [Suspect]
     Active Substance: IBUPROFEN
     Indication: VIRAL PHARYNGITIS
     Dosage: 1200 MG, 1X/DAY
     Route: 048
     Dates: start: 20181003, end: 20181005
  4. UROREC [Concomitant]
     Active Substance: SILODOSIN
  5. PANOTILE CIPRO [Concomitant]
  6. AVODART [Concomitant]
     Active Substance: DUTASTERIDE
  7. PARACETAMOL [Concomitant]
     Active Substance: ACETAMINOPHEN
  8. XARELTO [Concomitant]
     Active Substance: RIVAROXABAN
  9. TAHOR [Concomitant]
     Active Substance: ATORVASTATIN CALCIUM
  10. INEXIUM [ESOMEPRAZOLE MAGNESIUM] [Concomitant]
     Active Substance: ESOMEPRAZOLE MAGNESIUM
  11. EXFORGE [Concomitant]
     Active Substance: AMLODIPINE BESYLATE\VALSARTAN
  12. CERULYSE [Concomitant]
  13. ATARAX [ALPRAZOLAM] [Concomitant]
     Active Substance: ALPRAZOLAM

REACTIONS (1)
  - Peritonsillar abscess [Recovering/Resolving]

NARRATIVE: CASE EVENT DATE: 20181005
